FAERS Safety Report 6422136-6 (Version None)
Quarter: 2009Q4

REPORT INFORMATION
  Report Type: 
  Country: None (occurrence: None)
  Receive Date: 20091029
  Receipt Date: 20091029
  Transmission Date: 20100525
  Serious: Yes (Life-Threatening, Hospitalization)
  Sender: FDA-Public Use
  Company Number: None

PATIENT
  Sex: Female
  Weight: 108 kg

DRUGS (1)
  1. SODIUM FERRIC GLUCONATE COMPLEX [Suspect]
     Indication: CHEST PAIN
     Dosage: 25 MG/2 ML OC1 IV
     Route: 042
     Dates: start: 20091020

REACTIONS (9)
  - ANXIETY [None]
  - DISORIENTATION [None]
  - DYSPNOEA [None]
  - ERYTHEMA [None]
  - HAEMODYNAMIC INSTABILITY [None]
  - HYPERHIDROSIS [None]
  - HYPERTENSION [None]
  - OXYGEN SATURATION DECREASED [None]
  - THROAT TIGHTNESS [None]
